FAERS Safety Report 8575575-1 (Version None)
Quarter: 2012Q3

REPORT INFORMATION
  Report Type: 
  Country: None (occurrence: None)
  Receive Date: 20120807
  Receipt Date: 20120730
  Transmission Date: 20120928
  Serious: Yes (Hospitalization, Disabling, Other)
  Sender: FDA-Public Use
  Company Number: US-US-EMD SERONO, INC.-237671K09USA

PATIENT
  Sex: Female
  Weight: 73 kg

DRUGS (3)
  1. REBIF [Suspect]
     Indication: MULTIPLE SCLEROSIS
     Route: 058
     Dates: start: 20070530, end: 20101001
  2. EFFEXOR XR [Concomitant]
     Dates: start: 20100101
  3. EFFEXOR XR [Concomitant]
     Indication: DEPRESSION
     Dates: end: 20100101

REACTIONS (11)
  - DEPRESSION [None]
  - INJECTION SITE RASH [None]
  - WEIGHT INCREASED [None]
  - OPTIC NERVE DISORDER [None]
  - HYPERSENSITIVITY [None]
  - ARTHRALGIA [None]
  - SUICIDE ATTEMPT [None]
  - CONVULSION [None]
  - FATIGUE [None]
  - DISORIENTATION [None]
  - COGNITIVE DISORDER [None]
